FAERS Safety Report 12940914 (Version 7)
Quarter: 2017Q1

REPORT INFORMATION
  Report Type: Spontaneous
  Country: GB (occurrence: GB)
  Receive Date: 20161114
  Receipt Date: 20170323
  Transmission Date: 20170428
  Serious: Yes (Other)
  Sender: FDA-Public Use
  Company Number: GB-MYLANLABS-2016M1048593

PATIENT

DRUGS (3)
  1. CLOZARIL [Suspect]
     Active Substance: CLOZAPINE
     Indication: SCHIZOPHRENIA
     Dosage: 200 MG, AM
     Route: 048
     Dates: start: 20021219
  2. CLOZARIL [Suspect]
     Active Substance: CLOZAPINE
     Dosage: 275 MG, PM
     Route: 048
     Dates: start: 20021219
  3. TAMSULOSIN [Concomitant]
     Active Substance: TAMSULOSIN
     Indication: BENIGN PROSTATIC HYPERPLASIA
     Dosage: 400 ?G, QD
     Route: 048

REACTIONS (10)
  - Depression [Unknown]
  - White blood cell count decreased [Recovered/Resolved]
  - Lymphoma [Unknown]
  - Salivary hypersecretion [Unknown]
  - Off label use [Unknown]
  - Alopecia [Unknown]
  - Neutrophil count decreased [Recovered/Resolved]
  - Constipation [Unknown]
  - Leukocytosis [Unknown]
  - Lipids increased [Unknown]

NARRATIVE: CASE EVENT DATE: 2016
